FAERS Safety Report 8366965-0 (Version None)
Quarter: 2012Q2

REPORT INFORMATION
  Report Type: 
  Country: None (occurrence: None)
  Receive Date: 20120517
  Receipt Date: 20120515
  Transmission Date: 20120825
  Serious: Yes (Death, Hospitalization, Other)
  Sender: FDA-Public Use
  Company Number: PHHY2012MX026007

PATIENT
  Sex: Female

DRUGS (2)
  1. FEMARA [Suspect]
     Indication: BONE NEOPLASM MALIGNANT
  2. FEMARA [Suspect]
     Indication: NEOPLASM MALIGNANT
     Dosage: 2.5 MG, DAILY
     Route: 048
     Dates: start: 20100520

REACTIONS (4)
  - LUNG DISORDER [None]
  - DYSPNOEA [None]
  - EMPHYSEMA [None]
  - HAEMOGLOBIN DECREASED [None]
